FAERS Safety Report 12312103 (Version 1)
Quarter: 2016Q2

REPORT INFORMATION
  Report Type: Report from Study
  Country: AR (occurrence: AR)
  Receive Date: 20160427
  Receipt Date: 20160427
  Transmission Date: 20160815
  Serious: Yes (Hospitalization, Disabling, Other)
  Sender: FDA-Public Use
  Company Number: PHHO2010AR06958

PATIENT
  Age: 68 Year
  Sex: Male
  Weight: 95.2 kg

DRUGS (9)
  1. ENALAPRIL [Concomitant]
     Active Substance: ENALAPRIL
     Dosage: UNK
     Dates: start: 20100225
  2. CARVEDILOL. [Concomitant]
     Active Substance: CARVEDILOL
  3. AMIODARONE [Concomitant]
     Active Substance: AMIODARONE
  4. DIGOXINE [Concomitant]
     Active Substance: DIGOXIN
  5. TAMSULOSIN [Concomitant]
     Active Substance: TAMSULOSIN
  6. FUROSEMIDE. [Concomitant]
     Active Substance: FUROSEMIDE
  7. ALISKIREN [Suspect]
     Active Substance: ALISKIREN
     Indication: CARDIAC FAILURE
     Dosage: 300 MG, UNK
     Route: 048
     Dates: start: 20100429, end: 20100502
  8. TIMOLOL. [Concomitant]
     Active Substance: TIMOLOL
  9. PILOCARPINE. [Concomitant]
     Active Substance: PILOCARPINE

REACTIONS (3)
  - Disease progression [Recovering/Resolving]
  - Cardiac failure [Recovering/Resolving]
  - Urinary retention [Recovering/Resolving]

NARRATIVE: CASE EVENT DATE: 20100503
